FAERS Safety Report 9473338 (Version 2)
Quarter: 2013Q3

REPORT INFORMATION
  Report Type: Spontaneous
  Country: US (occurrence: US)
  Receive Date: 20130823
  Receipt Date: 20130823
  Transmission Date: 20140515
  Serious: No
  Sender: FDA-Public Use
  Company Number: US-BRISTOL-MYERS SQUIBB COMPANY-18901751

PATIENT
  Age: 59 Year
  Sex: Female
  Weight: 104.31 kg

DRUGS (7)
  1. SPRYCEL [Suspect]
     Indication: CHRONIC MYELOID LEUKAEMIA
     Route: 048
     Dates: start: 20130427
  2. ACIPHEX [Concomitant]
  3. LEXAPRO [Concomitant]
  4. HYDROXYZINE [Concomitant]
  5. MOTRIN [Concomitant]
  6. SYNTHROID [Concomitant]
  7. THYROXINE [Concomitant]

REACTIONS (1)
  - Rash pruritic [Recovered/Resolved]
